FAERS Safety Report 4860035-1 (Version None)
Quarter: 2005Q4

REPORT INFORMATION
  Report Type: 
  Country: None (occurrence: None)
  Receive Date: 20051219
  Receipt Date: 20051205
  Transmission Date: 20060501
  Serious: Yes (Other)
  Sender: FDA-Public Use
  Company Number: US-ROCHE-427728

PATIENT
  Age: 14 Year
  Sex: Male

DRUGS (1)
  1. ACCUTANE [Suspect]
     Route: 048
     Dates: start: 20041223, end: 20050714

REACTIONS (2)
  - PERSONALITY CHANGE [None]
  - SUICIDAL IDEATION [None]
